FAERS Safety Report 13848887 (Version 1)
Quarter: 2017Q3

REPORT INFORMATION
  Report Type: Spontaneous
  Country: US (occurrence: US)
  Receive Date: 20170809
  Receipt Date: 20170809
  Transmission Date: 20171127
  Serious: No
  Sender: FDA-Public Use
  Company Number: None

PATIENT
  Age: 62 Year
  Sex: Female
  Weight: 191.13 kg

DRUGS (1)
  1. CEFEPIME [Suspect]
     Active Substance: CEFEPIME HYDROCHLORIDE
     Indication: URINARY TRACT INFECTION
     Route: 042
     Dates: start: 20170405, end: 20170410

REACTIONS (3)
  - Therapy cessation [None]
  - Heart rate increased [None]
  - Injection related reaction [None]

NARRATIVE: CASE EVENT DATE: 20170410
